FAERS Safety Report 6524256-4 (Version None)
Quarter: 2009Q4

REPORT INFORMATION
  Report Type: 
  Country: None (occurrence: None)
  Receive Date: 20091230
  Receipt Date: 20091230
  Transmission Date: 20100525
  Serious: Yes (Hospitalization, Disabling)
  Sender: FDA-Public Use
  Company Number: None

PATIENT
  Age: 66 Year
  Sex: Male

DRUGS (8)
  1. ZOSYN [Suspect]
     Indication: PSEUDOMONAS INFECTION
     Dosage: 4.5GM Q6H IV
     Route: 042
     Dates: start: 20091005, end: 20091018
  2. ZOSYN [Suspect]
     Indication: SUPERINFECTION
     Dosage: 4.5GM Q6H IV
     Route: 042
     Dates: start: 20091005, end: 20091018
  3. VANCOMYCIN [Concomitant]
  4. ASPIRIN [Concomitant]
  5. CITALOPRAM HYDROBROMIDE [Concomitant]
  6. PREGABALIN [Concomitant]
  7. LISINOPRIL [Concomitant]
  8. METFORMIN [Concomitant]

REACTIONS (2)
  - PSEUDOMONAS INFECTION [None]
  - RENAL FAILURE ACUTE [None]
